FAERS Safety Report 9555617 (Version 2)
Quarter: 2013Q3

REPORT INFORMATION
  Report Type: Report from Study
  Country: BR (occurrence: BR)
  Receive Date: 20130926
  Receipt Date: 20130926
  Transmission Date: 20140515
  Serious: Yes (Other)
  Sender: FDA-Public Use
  Company Number: PHHY2012BR071696

PATIENT
  Age: 78 Year
  Sex: Male

DRUGS (1)
  1. INDACATEROL [Suspect]
     Dosage: 300 UG PER DAY

REACTIONS (2)
  - Infective exacerbation of chronic obstructive airways disease [Recovering/Resolving]
  - Forced expiratory volume decreased [Recovering/Resolving]
